FAERS Safety Report 4907044-1 (Version None)
Quarter: 2006Q1

REPORT INFORMATION
  Report Type: 
  Country: None (occurrence: None)
  Receive Date: 20060207
  Receipt Date: 20060120
  Transmission Date: 20060701
  Serious: Yes (Death, Life-Threatening, Hospitalization)
  Sender: FDA-Public Use
  Company Number: 200610082BWH

PATIENT
  Age: 55 Year
  Sex: Male
  Weight: 70.4 kg

DRUGS (17)
  1. SORAFENIB [Suspect]
     Indication: METASTATIC RENAL CELL CARCINOMA
     Dosage: SEE IMAGE
     Route: 048
     Dates: start: 20050826, end: 20060105
  2. SORAFENIB [Suspect]
     Indication: METASTATIC RENAL CELL CARCINOMA
     Dosage: SEE IMAGE
     Route: 048
     Dates: start: 20060107, end: 20060113
  3. COUMADIN [Concomitant]
  4. MULTI-VITAMIN [Concomitant]
  5. OXYCODONE [Concomitant]
  6. DOXYCYCLINE [Concomitant]
  7. ARANESP [Concomitant]
  8. MS CONTIN [Concomitant]
  9. LOVENOX [Concomitant]
  10. LASIX [Concomitant]
  11. MUCOMYST [Concomitant]
  12. COLACE [Concomitant]
  13. TYLENOL [Concomitant]
  14. NEXIUM [Concomitant]
  15. PREDNISONE [Concomitant]
  16. ROBITUSIN [Concomitant]
  17. DUONEB [Concomitant]

REACTIONS (16)
  - ACTIVATED PARTIAL THROMBOPLASTIN TIME PROLONGED [None]
  - AGITATION [None]
  - ASCITES [None]
  - BACTEROIDES INFECTION [None]
  - CONFUSIONAL STATE [None]
  - DYSPNOEA [None]
  - HEART RATE INCREASED [None]
  - HYPOTENSION [None]
  - HYPOXIA [None]
  - INFECTION [None]
  - INTERNATIONAL NORMALISED RATIO INCREASED [None]
  - INTESTINAL PERFORATION [None]
  - PERITONITIS BACTERIAL [None]
  - PLEURAL EFFUSION [None]
  - RESPIRATORY RATE INCREASED [None]
  - SEPSIS [None]
